FAERS Safety Report 8799318 (Version 4)
Quarter: 2012Q4

REPORT INFORMATION
  Report Type: 
  Country: US (occurrence: US)
  Receive Date: 20120919
  Receipt Date: 20121109
  Transmission Date: 20130627
  Serious: Yes (Hospitalization)
  Sender: FDA-Public Use
  Company Number: US-SANOFI-AVENTIS-2012SA067718

PATIENT
  Age: 64 Year
  Sex: Male

DRUGS (15)
  1. MULTAQ [Suspect]
     Indication: PAROXYSMAL ATRIAL FIBRILLATION
     Route: 048
     Dates: start: 20100923, end: 20120705
  2. LEVOFLOXACIN [Suspect]
     Indication: COPD EXACERBATION
     Route: 065
     Dates: start: 20120705
  3. LEVOFLOXACIN [Suspect]
     Indication: PNEUMONIA
     Route: 065
     Dates: start: 20120705
  4. COREG [Concomitant]
     Route: 048
  5. ALBUTEROL [Concomitant]
  6. DUONEB [Concomitant]
  7. WELLBUTRIN - SLOW RELEASE [Concomitant]
     Route: 048
  8. LOVENOX [Concomitant]
  9. LEVOFLOXACIN [Concomitant]
     Route: 042
  10. LEVOTHYROXINE [Concomitant]
  11. LORAZEPAM [Concomitant]
  12. MEMANTINE [Concomitant]
  13. SOLUMEDROL [Concomitant]
  14. SERTRALINE [Concomitant]
  15. PEPCID [Concomitant]

REACTIONS (5)
  - Cardiac arrest [Recovered/Resolved]
  - Torsade de pointes [Recovered/Resolved]
  - Ventricular tachycardia [Recovered/Resolved]
  - Electrocardiogram QT prolonged [Recovered/Resolved]
  - Drug interaction [Recovered/Resolved]
